FAERS Safety Report 4875165-8 (Version None)
Quarter: 2006Q1

REPORT INFORMATION
  Report Type: 
  Country: None (occurrence: None)
  Receive Date: 20060104
  Receipt Date: 20051219
  Transmission Date: 20060701
  Serious: Yes (Other)
  Sender: FDA-Public Use
  Company Number: S05-FRA-05748-01

PATIENT
  Sex: Female

DRUGS (2)
  1. SEROPLEX (ESCITALOPRAM) [Suspect]
     Dates: end: 20051021
  2. FLECAINIDE ACETATE [Concomitant]

REACTIONS (2)
  - DYSKINESIA [None]
  - SALIVARY GLAND CALCULUS [None]
